FAERS Safety Report 19886933 (Version 5)
Quarter: 2022Q2

REPORT INFORMATION
  Report Type: Spontaneous
  Country: JP (occurrence: JP)
  Receive Date: 20210928
  Receipt Date: 20220502
  Transmission Date: 20220721
  Serious: Yes (Other)
  Sender: FDA-Public Use
  Company Number: JP-BRISTOL-MYERS SQUIBB COMPANY-BMS-2021-095936

PATIENT
  Age: 26 Year
  Sex: Female
  Weight: 45.1 kg

DRUGS (8)
  1. DASATINIB [Suspect]
     Active Substance: DASATINIB
     Indication: Chronic myeloid leukaemia
     Dosage: 50-100MG*1 TIME
     Route: 050
     Dates: start: 20200407, end: 20210913
  2. DASATINIB [Suspect]
     Active Substance: DASATINIB
     Dosage: 50 MILLIGRAM, QD
     Route: 048
     Dates: start: 20200515, end: 20200521
  3. DASATINIB [Suspect]
     Active Substance: DASATINIB
     Dosage: 100 MILLIGRAM, QD
     Route: 048
     Dates: start: 20200522, end: 20200610
  4. DASATINIB [Suspect]
     Active Substance: DASATINIB
     Dosage: 100 MILLIGRAM, QD
     Route: 048
     Dates: start: 20200616, end: 20200706
  5. DASATINIB [Suspect]
     Active Substance: DASATINIB
     Dosage: 70 MILLIGRAM, QD
     Route: 048
     Dates: start: 20200714, end: 20201001
  6. DASATINIB [Suspect]
     Active Substance: DASATINIB
     Dosage: 100 MILLIGRAM, QD
     Route: 048
     Dates: start: 20201002, end: 20210209
  7. DASATINIB [Suspect]
     Active Substance: DASATINIB
     Dosage: 100 MILLIGRAM, QD
     Route: 048
     Dates: start: 20210215, end: 20210913
  8. LIVALO [Concomitant]
     Active Substance: PITAVASTATIN CALCIUM
     Indication: Product used for unknown indication
     Route: 065
     Dates: start: 20200427

REACTIONS (4)
  - Acute febrile neutrophilic dermatosis [Recovered/Resolved]
  - Platelet count decreased [Recovered/Resolved]
  - Abdominal pain [Recovered/Resolved]
  - Hepatic function abnormal [Recovered/Resolved]

NARRATIVE: CASE EVENT DATE: 20200427
